FAERS Safety Report 17068240 (Version 19)
Quarter: 2021Q2

REPORT INFORMATION
  Report Type: Report from Study
  Country: US (occurrence: US)
  Receive Date: 20191123
  Receipt Date: 20210525
  Transmission Date: 20210716
  Serious: Yes (Hospitalization, Other)
  Sender: FDA-Public Use
  Company Number: US-SHIRE-US201938232

PATIENT
  Age: 39 Year
  Sex: Female
  Weight: 175 kg

DRUGS (38)
  1. PROAIR [FLUTICASONE PROPIONATE] [Concomitant]
     Active Substance: FLUTICASONE PROPIONATE
     Dosage: UNK
     Route: 065
  2. CATHFLO ACTIVASE [Concomitant]
     Active Substance: ALTEPLASE
     Dosage: UNK
     Route: 065
  3. EPINEPHRINE. [Concomitant]
     Active Substance: EPINEPHRINE
     Dosage: UNK
     Route: 065
  4. LIDOCAINE PRILOCAINE BIOGARAN [Concomitant]
     Dosage: UNK
     Route: 065
  5. ATENOLOL. [Concomitant]
     Active Substance: ATENOLOL
     Dosage: UNK
     Route: 065
  6. NALTREXONE [Concomitant]
     Active Substance: NALTREXONE
     Dosage: UNK
     Route: 065
  7. HUMAN NORMAL IMMUNOGLOBULIN; LIQUID [Suspect]
     Active Substance: HUMAN IMMUNOGLOBULIN G
     Indication: CELLULITIS
     Dosage: 40 GRAM, 1X/2WKS
     Route: 042
     Dates: start: 20200101
  8. HEPARIN [Concomitant]
     Active Substance: HEPARIN SODIUM
     Dosage: UNK
     Route: 065
  9. VITAMIN D3 [Concomitant]
     Active Substance: CHOLECALCIFEROL
     Dosage: UNK
     Route: 065
  10. OXYCODONE [Concomitant]
     Active Substance: OXYCODONE
     Dosage: UNK
     Route: 065
  11. LIDOCAINE/PRILOCAINE [Concomitant]
     Active Substance: LIDOCAINE\PRILOCAINE
     Dosage: UNK
     Route: 065
  12. LOVENOX [LEVOFLOXACIN] [Concomitant]
     Active Substance: LEVOFLOXACIN
     Dosage: UNK
     Route: 065
  13. HUMAN NORMAL IMMUNOGLOBULIN; LIQUID [Suspect]
     Active Substance: HUMAN IMMUNOGLOBULIN G
     Indication: NERVOUS SYSTEM DISORDER
     Dosage: 40 GRAM, 1X/2WKS
     Route: 042
     Dates: start: 20190222
  14. ZOFRAN [Concomitant]
     Active Substance: ONDANSETRON HYDROCHLORIDE
     Dosage: UNK
     Route: 065
  15. CATHFLO ACTIVASE [Concomitant]
     Active Substance: ALTEPLASE
     Dosage: UNK
     Route: 065
  16. ENOXAPARIN [Concomitant]
     Active Substance: ENOXAPARIN
     Dosage: UNK
     Route: 065
  17. KEPPRA [Concomitant]
     Active Substance: LEVETIRACETAM
     Dosage: UNK
     Route: 065
  18. FLUDROCORTISONE [Concomitant]
     Active Substance: FLUDROCORTISONE
     Dosage: UNK
     Route: 065
  19. VITAMIN B [Concomitant]
     Active Substance: VITAMIN B
     Dosage: UNK
     Route: 065
  20. LIDOCAINE. [Concomitant]
     Active Substance: LIDOCAINE
     Dosage: UNK
     Route: 065
  21. LORAZEPAM. [Concomitant]
     Active Substance: LORAZEPAM
     Dosage: UNK
     Route: 065
  22. EPIPEN [Concomitant]
     Active Substance: EPINEPHRINE
     Dosage: UNK
     Route: 065
  23. ACETAMINOPHEN. [Concomitant]
     Active Substance: ACETAMINOPHEN
     Dosage: UNK
     Route: 065
  24. DIPHENHYDRAMINE. [Concomitant]
     Active Substance: DIPHENHYDRAMINE
     Dosage: UNK
     Route: 065
  25. MARINOL [ALLOPURINOL] [Concomitant]
     Active Substance: ALLOPURINOL
     Dosage: UNK
     Route: 065
  26. MIDODRINE [Concomitant]
     Active Substance: MIDODRINE
     Dosage: UNK
     Route: 065
  27. SODIUM CHLORIDE. [Concomitant]
     Active Substance: SODIUM CHLORIDE
     Dosage: UNK
     Route: 065
  28. HUMAN NORMAL IMMUNOGLOBULIN; LIQUID [Suspect]
     Active Substance: HUMAN IMMUNOGLOBULIN G
     Indication: POLYNEUROPATHY
     Dosage: 40 GRAM, 1X/2WKS
     Route: 042
     Dates: start: 20190219
  29. NORMAL SALINE [Concomitant]
     Active Substance: SODIUM CHLORIDE
     Dosage: UNK
     Route: 065
  30. CORLANOR [Concomitant]
     Active Substance: IVABRADINE HYDROCHLORIDE
     Dosage: UNK
     Route: 065
  31. VITAMIN B12 [Concomitant]
     Active Substance: CYANOCOBALAMIN
     Dosage: UNK
     Route: 065
  32. LEXAPRO [Concomitant]
     Active Substance: ESCITALOPRAM OXALATE
     Dosage: UNK
     Route: 065
  33. IBUPROFEN. [Concomitant]
     Active Substance: IBUPROFEN
     Dosage: UNK
     Route: 065
  34. FAMOTIDINE. [Concomitant]
     Active Substance: FAMOTIDINE
     Dosage: UNK
     Route: 065
  35. VITAMIN D [COLECALCIFEROL] [Concomitant]
     Active Substance: CHOLECALCIFEROL
     Dosage: UNK
     Route: 065
  36. CROMOLYN [CROMOGLICATE SODIUM] [Concomitant]
     Active Substance: CROMOLYN SODIUM
     Dosage: UNK
     Route: 065
  37. DIPHENHYDRAMINE HYDROCHLORIDE. [Concomitant]
     Active Substance: DIPHENHYDRAMINE HYDROCHLORIDE
     Dosage: UNK
     Route: 065
  38. INFUVITE [Concomitant]
     Active Substance: VITAMINS
     Dosage: UNK
     Route: 065

REACTIONS (21)
  - Infusion related reaction [Unknown]
  - Vomiting [Unknown]
  - Headache [Unknown]
  - Intentional product use issue [Unknown]
  - Erythema [Unknown]
  - Fatigue [Unknown]
  - Catheter site infection [Unknown]
  - Stoma site cellulitis [Unknown]
  - Gastrointestinal stoma complication [Unknown]
  - Cellulitis [Recovered/Resolved]
  - Fall [Unknown]
  - Pyrexia [Recovered/Resolved]
  - Dizziness [Unknown]
  - Nausea [Unknown]
  - Product dose omission issue [Unknown]
  - Infection [Unknown]
  - Infusion site extravasation [Unknown]
  - Chest discomfort [Unknown]
  - Chills [Unknown]
  - Feeling abnormal [Unknown]
  - Blood pressure fluctuation [Unknown]

NARRATIVE: CASE EVENT DATE: 20191104
